FAERS Safety Report 17898726 (Version 1)
Quarter: 2020Q2

REPORT INFORMATION
  Report Type: Other
  Country: PL (occurrence: PL)
  Receive Date: 20200616
  Receipt Date: 20200616
  Transmission Date: 20200714
  Serious: Yes (Other)
  Sender: FDA-Public Use
  Company Number: PL-NUVO PHARMACEUTICALS INC-2085898

PATIENT
  Age: 69 Year
  Sex: Male

DRUGS (1)
  1. OXYCODONE HYDROCHLORIDE. [Suspect]
     Active Substance: OXYCODONE HYDROCHLORIDE
     Indication: POSTOPERATIVE ANALGESIA
     Route: 040

REACTIONS (1)
  - Respiratory failure [Unknown]
